FAERS Safety Report 24315211 (Version 4)
Quarter: 2025Q3

REPORT INFORMATION
  Report Type: Spontaneous
  Country: EU (occurrence: EU)
  Receive Date: 20240913
  Receipt Date: 20250903
  Transmission Date: 20251021
  Serious: Yes (Hospitalization)
  Sender: MSN LABORATORIES PRIVATE LIMITED
  Company Number: EU-ALKEM LABORATORIES LIMITED-DE-ALKEM-2024-14652

PATIENT

DRUGS (8)
  1. PREGABALIN [Suspect]
     Active Substance: PREGABALIN
     Indication: Product used for unknown indication
     Route: 065
  2. BUPRENORPHINE [Suspect]
     Active Substance: BUPRENORPHINE
     Indication: Product used for unknown indication
     Route: 065
  3. LORAZEPAM [Suspect]
     Active Substance: LORAZEPAM
     Indication: Product used for unknown indication
     Route: 065
  4. METHYLENEDIOXYPYRROLIDINOHEXIOPHENONE [Suspect]
     Active Substance: METHYLENEDIOXYPYRROLIDINOHEXIOPHENONE
     Indication: Product used for unknown indication
     Route: 065
  5. METHYLPHENIDATE HYDROCHLORIDE [Suspect]
     Active Substance: METHYLPHENIDATE HYDROCHLORIDE
     Indication: Product used for unknown indication
     Route: 065
  6. NORBUPRENORPHINE [Suspect]
     Active Substance: NORBUPRENORPHINE
     Indication: Product used for unknown indication
     Route: 065
  7. OLANZAPINE [Suspect]
     Active Substance: OLANZAPINE
     Indication: Product used for unknown indication
     Route: 065
  8. QUETIAPINE FUMARATE [Suspect]
     Active Substance: QUETIAPINE FUMARATE
     Indication: Product used for unknown indication
     Route: 065

REACTIONS (4)
  - Abnormal behaviour [Unknown]
  - Aggression [Unknown]
  - Screaming [Unknown]
  - Intentional product misuse [Unknown]
